FAERS Safety Report 9468404 (Version 1)
Quarter: 2013Q3

REPORT INFORMATION
  Report Type: Spontaneous
  Country: FR (occurrence: FR)
  Receive Date: 20130821
  Receipt Date: 20130821
  Transmission Date: 20140515
  Serious: Yes (Other)
  Sender: FDA-Public Use
  Company Number: PHHY2013FR089411

PATIENT
  Age: 32 Year
  Sex: Female

DRUGS (2)
  1. METFORMIN [Suspect]
     Dosage: UNK UKN, UNK
  2. INSULIN [Suspect]
     Indication: GESTATIONAL DIABETES

REACTIONS (7)
  - Abortion spontaneous [Unknown]
  - Premature rupture of membranes [Unknown]
  - Amniotic cavity infection [Unknown]
  - Funisitis [Unknown]
  - Shortened cervix [Unknown]
  - Gestational diabetes [Unknown]
  - Maternal exposure during pregnancy [Unknown]
